FAERS Safety Report 6292165-4 (Version None)
Quarter: 2009Q3

REPORT INFORMATION
  Report Type: 
  Country: None (occurrence: None)
  Receive Date: 20090730
  Receipt Date: 20090730
  Transmission Date: 20100115
  Serious: No
  Sender: FDA-Public Use
  Company Number: None

PATIENT
  Age: 76 Year
  Sex: Female
  Weight: 70.7611 kg

DRUGS (2)
  1. DURAGESIC-50 [Suspect]
     Indication: MYOFASCIAL PAIN SYNDROME
     Dosage: CHANGED Q72 TRANSDERMAL
     Route: 062
     Dates: start: 20050513
  2. DURAGESIC-50 [Suspect]
     Indication: OSTEOARTHRITIS
     Dosage: CHANGED Q72 TRANSDERMAL
     Route: 062
     Dates: start: 20050513

REACTIONS (3)
  - APPLICATION SITE IRRITATION [None]
  - APPLICATION SITE SWELLING [None]
  - PRODUCT SUBSTITUTION ISSUE [None]
